FAERS Safety Report 8334188-7 (Version None)
Quarter: 2012Q2

REPORT INFORMATION
  Report Type: 
  Country: None (occurrence: None)
  Receive Date: 20120503
  Receipt Date: 20120423
  Transmission Date: 20120825
  Serious: Yes (Hospitalization)
  Sender: FDA-Public Use
  Company Number: ES-TEVA-335434ISR

PATIENT
  Age: 78 Year
  Sex: Male

DRUGS (2)
  1. ACYCLOVIR [Suspect]
     Indication: SKIN LESION
  2. ACYCLOVIR [Suspect]
     Indication: PAIN
     Dosage: 1200 MILLIGRAM;
     Route: 048

REACTIONS (4)
  - HALLUCINATION, VISUAL [None]
  - INCORRECT DOSE ADMINISTERED [None]
  - APHASIA [None]
  - ATAXIA [None]
